FAERS Safety Report 10183003 (Version 1)
Quarter: 2014Q2

REPORT INFORMATION
  Report Type: Spontaneous
  Country: US (occurrence: US)
  Receive Date: 20140520
  Receipt Date: 20140520
  Transmission Date: 20141212
  Serious: No
  Sender: FDA-Public Use
  Company Number: US-PFIZER INC-2014136357

PATIENT
  Sex: Female

DRUGS (1)
  1. GABAPENTIN [Suspect]
     Dosage: UNK

REACTIONS (7)
  - Poor quality sleep [Recovered/Resolved]
  - Nightmare [Recovered/Resolved]
  - Abnormal dreams [Recovered/Resolved]
  - Dissociation [Recovered/Resolved]
  - Burning sensation [Recovered/Resolved]
  - Dry mouth [Recovered/Resolved]
  - Drug ineffective [Recovered/Resolved]
